FAERS Safety Report 19676719 (Version 6)
Quarter: 2022Q1

REPORT INFORMATION
  Report Type: Report from Study
  Country: US (occurrence: US)
  Receive Date: 20210810
  Receipt Date: 20220131
  Transmission Date: 20220423
  Serious: Yes (Death, Hospitalization)
  Sender: FDA-Public Use
  Company Number: US-JNJFOC-20210811818

PATIENT
  Age: 43 Year
  Sex: Male
  Weight: 80.3 kg

DRUGS (1)
  1. USTEKINUMAB [Suspect]
     Active Substance: USTEKINUMAB
     Indication: Product used for unknown indication
     Dosage: ONCE
     Route: 058
     Dates: start: 20210512

REACTIONS (4)
  - COVID-19 pneumonia [Fatal]
  - Acute respiratory failure [Fatal]
  - Sepsis [Fatal]
  - Acute kidney injury [Fatal]

NARRATIVE: CASE EVENT DATE: 20210731
